FAERS Safety Report 8790527 (Version 1)
Quarter: 2012Q4

REPORT INFORMATION
  Report Type: Spontaneous
  Country: US (occurrence: None)
  Receive Date: 20120911
  Receipt Date: 20120911
  Transmission Date: 20130627
  Serious: No
  Sender: FDA-Public Use
  Company Number: None

PATIENT
  Sex: Male
  Weight: 35.4 kg

DRUGS (3)
  1. DEPAKENE [Suspect]
     Indication: SEIZURE
     Dosage: 250mg/5ml 3ml bid G tube + 150mg at snack time if pt cannot take
^partially illegible.^
     Route: 048
  2. DEPAKENE [Suspect]
     Indication: SEIZURE
  3. ONFI [Concomitant]

REACTIONS (2)
  - Convulsion [None]
  - Product substitution issue [None]
